FAERS Safety Report 9906280 (Version 2)
Quarter: 2014Q1

REPORT INFORMATION
  Report Type: Spontaneous
  Country: US (occurrence: US)
  Receive Date: 20140218
  Receipt Date: 20140218
  Transmission Date: 20141002
  Serious: Yes (Other)
  Sender: FDA-Public Use
  Company Number: US-PFIZER INC-2014042997

PATIENT
  Age: 66 Year
  Sex: Female

DRUGS (12)
  1. RISPERIDONE [Suspect]
     Indication: AGITATION
     Dosage: 1 MG EVERY 6 HOURS AS NEEDED
  2. HALOPERIDOL [Suspect]
     Indication: AGITATION
     Dosage: UNK
     Route: 042
  3. HALOPERIDOL [Suspect]
     Dosage: 15 MG EVERY 8 HOURS PLUS SOME AS-NEEDED DOSES
     Route: 042
  4. QUETIAPINE FUMARATE [Suspect]
     Indication: AGITATION
     Dosage: UNK
  5. QUETIAPINE FUMARATE [Suspect]
     Dosage: 200 MG TWICE DAILY AND 400 MG AT NIGHT
  6. MIDAZOLAM [Concomitant]
     Indication: AGITATION
     Dosage: UNK
  7. MORPHINE [Concomitant]
     Indication: AGITATION
     Dosage: UNK
  8. ALPRAZOLAM [Concomitant]
     Indication: AGITATION
     Dosage: UNK
  9. PROPOFOL [Concomitant]
     Indication: AGITATION
     Dosage: UNK
  10. BUPROPION [Concomitant]
     Dosage: UNK
  11. FLUOXETINE [Concomitant]
     Dosage: UNK
  12. VALPROATE [Concomitant]
     Dosage: UNK

REACTIONS (3)
  - Electrocardiogram QT prolonged [Unknown]
  - Atrioventricular block [Unknown]
  - Off label use [Unknown]
